FAERS Safety Report 14424156 (Version 2)
Quarter: 2018Q2

REPORT INFORMATION
  Report Type: Spontaneous
  Country: KR (occurrence: KR)
  Receive Date: 20180123
  Receipt Date: 20180508
  Transmission Date: 20180711
  Serious: Yes (Other)
  Sender: FDA-Public Use
  Company Number: PHHY2018KR006020

PATIENT
  Age: 36 Year
  Sex: Male

DRUGS (6)
  1. CLARITHROMYCIN. [Concomitant]
     Active Substance: CLARITHROMYCIN
     Indication: MYCOBACTERIUM AVIUM COMPLEX INFECTION
     Dosage: UNK, Q2H
     Route: 047
  2. AMIKACIN. [Concomitant]
     Active Substance: AMIKACIN
     Indication: KERATITIS BACTERIAL
     Dosage: UNK, QID
     Route: 047
  3. VIGAMOX [Suspect]
     Active Substance: MOXIFLOXACIN HYDROCHLORIDE
     Indication: MYCOBACTERIUM AVIUM COMPLEX INFECTION
     Dosage: UNK, QID
     Route: 047
  4. VIGAMOX [Suspect]
     Active Substance: MOXIFLOXACIN HYDROCHLORIDE
     Indication: KERATITIS BACTERIAL
  5. CLARITHROMYCIN. [Concomitant]
     Active Substance: CLARITHROMYCIN
     Indication: KERATITIS BACTERIAL
     Dosage: UNK, QID
     Route: 047
  6. AMIKACIN. [Concomitant]
     Active Substance: AMIKACIN
     Indication: MYCOBACTERIUM AVIUM COMPLEX INFECTION
     Dosage: UNK, Q2H
     Route: 047

REACTIONS (3)
  - Corneal opacity [Recovered/Resolved]
  - Corneal infiltrates [Recovered/Resolved]
  - Toxicity to various agents [Recovered/Resolved]
